FAERS Safety Report 13618797 (Version 6)
Quarter: 2020Q3

REPORT INFORMATION
  Report Type: Report from Study
  Country: US (occurrence: US)
  Receive Date: 20170606
  Receipt Date: 20200818
  Transmission Date: 20201102
  Serious: Yes (Hospitalization)
  Sender: FDA-Public Use
  Company Number: US-ACTELION-A-US2017-153450

PATIENT
  Age: 64 Year
  Sex: Female
  Weight: 71.66 kg

DRUGS (9)
  1. VELETRI [Suspect]
     Active Substance: EPOPROSTENOL
     Dosage: 72 NG/KG, PER MIN
     Route: 042
  2. VELETRI [Suspect]
     Active Substance: EPOPROSTENOL
     Dosage: 74 NG/KG, PER MIN
     Route: 042
  3. SILDENAFIL CITRATE. [Concomitant]
     Active Substance: SILDENAFIL CITRATE
  4. VELETRI [Suspect]
     Active Substance: EPOPROSTENOL
     Indication: PULMONARY ARTERIAL HYPERTENSION
     Dosage: 83 NG/KG, PER MIN
     Route: 042
  5. VELETRI [Suspect]
     Active Substance: EPOPROSTENOL
     Dosage: 11 NG/KG/MIN
     Route: 042
  6. VELETRI [Suspect]
     Active Substance: EPOPROSTENOL
     Dosage: 83 NG/KG, PER MIN
     Route: 042
  7. VELETRI [Suspect]
     Active Substance: EPOPROSTENOL
     Dosage: 28 NG/KG, PER MIN
     Route: 042
  8. VERAPAMIL [Concomitant]
     Active Substance: VERAPAMIL HYDROCHLORIDE
  9. COUMADIN [Concomitant]
     Active Substance: WARFARIN SODIUM

REACTIONS (43)
  - Catheter site pain [Unknown]
  - Catheter site rash [Unknown]
  - Pain in jaw [Unknown]
  - Cough [Unknown]
  - Drug intolerance [Unknown]
  - Device issue [Unknown]
  - Dyspnoea [Unknown]
  - Asthenia [Unknown]
  - Malaise [Unknown]
  - Rhinitis allergic [Unknown]
  - Device dislocation [Unknown]
  - Catheter management [Unknown]
  - Pain in extremity [Unknown]
  - Joint swelling [Unknown]
  - Hernia [Unknown]
  - Rash [Unknown]
  - Catheter site irritation [Unknown]
  - Fatigue [Unknown]
  - Skin warm [Unknown]
  - Epistaxis [Unknown]
  - Device occlusion [Unknown]
  - Device malfunction [Unknown]
  - Haemorrhage [Unknown]
  - Fall [Unknown]
  - Flushing [Unknown]
  - Device alarm issue [Unknown]
  - Nausea [Unknown]
  - Feeling abnormal [Unknown]
  - Nasal congestion [Unknown]
  - Erythema [Unknown]
  - Abdominal pain upper [Unknown]
  - Chest discomfort [Unknown]
  - Pruritus [Unknown]
  - Central venous catheterisation [Unknown]
  - Catheter site pruritus [Unknown]
  - Application site erythema [Unknown]
  - Fluid retention [Unknown]
  - Joint injury [Unknown]
  - Headache [Unknown]
  - Tension headache [Unknown]
  - Weight increased [Unknown]
  - Sneezing [Unknown]
  - Nasopharyngitis [Unknown]

NARRATIVE: CASE EVENT DATE: 20170914
